FAERS Safety Report 15289918 (Version 1)
Quarter: 2018Q3

REPORT INFORMATION
  Report Type: Spontaneous
  Country: IE (occurrence: IE)
  Receive Date: 20180817
  Receipt Date: 20180817
  Transmission Date: 20181010
  Serious: Yes (Hospitalization)
  Sender: FDA-Public Use
  Company Number: IE-BAUSCH-BL-2018-021510

PATIENT
  Age: 75 Year
  Sex: Male
  Weight: 68.6 kg

DRUGS (14)
  1. REVLIMID [Suspect]
     Active Substance: LENALIDOMIDE
     Indication: PLASMA CELL MYELOMA
     Dosage: 25 MG
     Route: 048
     Dates: start: 20160809, end: 20161107
  2. REVLIMID [Suspect]
     Active Substance: LENALIDOMIDE
     Dosage: 25 MG
     Route: 048
     Dates: start: 20160419
  3. VALTREX [Concomitant]
     Active Substance: VALACYCLOVIR HYDROCHLORIDE
     Indication: PROPHYLACTIC CHEMOTHERAPY
     Route: 048
     Dates: start: 20160419
  4. FOLIC ACID. [Concomitant]
     Active Substance: FOLIC ACID
     Indication: VITAMIN SUPPLEMENTATION
     Route: 065
  5. INNOHEP [Concomitant]
     Active Substance: TINZAPARIN SODIUM
     Indication: PROPHYLACTIC CHEMOTHERAPY
     Route: 058
     Dates: start: 20160419
  6. REVLIMID [Suspect]
     Active Substance: LENALIDOMIDE
     Dosage: 25 MG
     Route: 048
     Dates: start: 20161018, end: 20161107
  7. FLUVASTATIN SODIUM. [Concomitant]
     Active Substance: FLUVASTATIN SODIUM
     Indication: CARDIOVASCULAR DISORDER
     Route: 065
  8. EXPUTEX [Concomitant]
     Indication: PROPHYLAXIS
     Route: 065
     Dates: start: 20161105
  9. DEXAMETHASONE. [Suspect]
     Active Substance: DEXAMETHASONE
     Dosage: 16 MG
     Route: 048
     Dates: start: 20160419, end: 20161018
  10. NEXIUM [Concomitant]
     Active Substance: ESOMEPRAZOLE MAGNESIUM
     Indication: PROPHYLACTIC CHEMOTHERAPY
     Route: 048
     Dates: start: 20160419
  11. CENTRUM [Concomitant]
     Active Substance: VITAMINS
     Indication: ANAEMIA
     Route: 048
     Dates: start: 20160503
  12. DEXAMETHASONE. [Suspect]
     Active Substance: DEXAMETHASONE
     Indication: PLASMA CELL MYELOMA
     Dosage: 16 MG
     Route: 048
     Dates: start: 20161101, end: 20161109
  13. CALCICHEW [Concomitant]
     Active Substance: CALCIUM CARBONATE
     Indication: HYPOCALCAEMIA
     Dosage: 2 (UNITS UNKNOWN) DAILY
     Route: 048
     Dates: start: 20160510
  14. PHOSPHATES [Concomitant]
     Indication: NUTRITIONAL SUPPLEMENTATION
     Route: 041
     Dates: start: 20160122

REACTIONS (4)
  - Upper respiratory tract infection [Recovered/Resolved with Sequelae]
  - Lower respiratory tract infection [Recovered/Resolved]
  - Sepsis [Recovered/Resolved]
  - Anaemia [Recovered/Resolved]

NARRATIVE: CASE EVENT DATE: 20160919
